FAERS Safety Report 15707720 (Version 4)
Quarter: 2019Q1

REPORT INFORMATION
  Report Type: Report from Study
  Country: SG (occurrence: SG)
  Receive Date: 20181211
  Receipt Date: 20190207
  Transmission Date: 20190417
  Serious: Yes (Hospitalization)
  Sender: FDA-Public Use
  Company Number: SG-TOLMAR, INC.-2018SG012272

PATIENT

DRUGS (8)
  1. CLARITHROMYCIN GENERICS [Concomitant]
     Active Substance: CLARITHROMYCIN
     Dosage: UNK
     Dates: start: 20181123, end: 20181128
  2. OMEPRAZOLE                         /00661202/ [Concomitant]
     Active Substance: OMEPRAZOLE SODIUM
     Dosage: UNK
     Dates: start: 20081216
  3. ELIGARD [Suspect]
     Active Substance: LEUPROLIDE ACETATE
     Indication: PROSTATE CANCER
     Dosage: 22.5 MG, Q3MONTHS
     Route: 058
     Dates: start: 20171207
  4. SENNOSIDES A+B [Concomitant]
     Active Substance: SENNOSIDES A AND B
     Dosage: UNK
     Dates: start: 20181128, end: 20181130
  5. NIFEDIPINE LA [Concomitant]
     Dosage: UNK
     Dates: start: 20140723, end: 20181130
  6. MUPIROCIN. [Concomitant]
     Active Substance: MUPIROCIN
     Dosage: UNK
     Dates: start: 20181123
  7. KETOPROFEN. [Concomitant]
     Active Substance: KETOPROFEN
     Indication: SPONDYLOLISTHESIS
     Dosage: UNK
     Dates: start: 20140114
  8. LACTULOSE. [Concomitant]
     Active Substance: LACTULOSE
     Dosage: UNK
     Dates: start: 20181128, end: 20181130

REACTIONS (4)
  - Upper respiratory tract infection [Recovered/Resolved with Sequelae]
  - Fluid overload [Recovered/Resolved with Sequelae]
  - Cardiac failure congestive [Recovered/Resolved with Sequelae]
  - Peripheral swelling [Recovering/Resolving]

NARRATIVE: CASE EVENT DATE: 20181128
